FAERS Safety Report 6720565-4 (Version None)
Quarter: 2010Q2

REPORT INFORMATION
  Report Type: 
  Country: None (occurrence: None)
  Receive Date: 20100510
  Receipt Date: 20100426
  Transmission Date: 20101027
  Serious: Yes (Other)
  Sender: FDA-Public Use
  Company Number: 010941

PATIENT
  Age: 56 Year
  Sex: Female
  Weight: 77 kg

DRUGS (3)
  1. LACOSAMIDE [Suspect]
     Indication: CONVULSION
     Dosage: 650 MG ORAL, 800 MG ORAL
     Route: 048
     Dates: start: 20090525
  2. KEPPRA [Suspect]
     Indication: CONVULSION
     Dosage: 2000 MG ORAL
     Route: 048
     Dates: start: 20040620
  3. VALIUM [Concomitant]

REACTIONS (3)
  - CONVULSION [None]
  - MEMORY IMPAIRMENT [None]
  - TREMOR [None]
